FAERS Safety Report 8924029 (Version 1)
Quarter: 2012Q4

REPORT INFORMATION
  Report Type: 
  Country: JP (occurrence: JP)
  Receive Date: 20121126
  Receipt Date: 20121126
  Transmission Date: 20130627
  Serious: Yes (Other)
  Sender: FDA-Public Use
  Company Number: JP-ASTRAZENECA-2012SE87655

PATIENT
  Age: 35 Year
  Sex: Female
  Weight: 45 kg

DRUGS (5)
  1. MEROPEN [Suspect]
     Route: 042
  2. TAZOBACTAM SODIUM+ PIPERACILLIN SODIUM [Concomitant]
  3. CEFAZOLIN SODIUM [Concomitant]
  4. VANCOMYCIN HYDROCHLORIDE [Concomitant]
  5. CEFOTIAM HEXETIL HYDROCHLORIDE [Concomitant]

REACTIONS (2)
  - Exposure during pregnancy [Unknown]
  - Premature labour [Unknown]
